FAERS Safety Report 5507196-9 (Version None)
Quarter: 2007Q4

REPORT INFORMATION
  Report Type: 
  Country: None (occurrence: None)
  Receive Date: 20071102
  Receipt Date: 20071024
  Transmission Date: 20080405
  Serious: Yes (Other)
  Sender: FDA-Public Use
  Company Number: 07H-163-0313381-00

PATIENT
  Age: 46 Year
  Sex: Male

DRUGS (5)
  1. CLINDAMYCIN [Suspect]
     Indication: EYE INFECTION TOXOPLASMAL
     Dosage: INTRAVITREAL INJECTION
  2. PREDNISONE [Concomitant]
  3. CLINDAMYCIN                (CLINDAMYCIN) [Concomitant]
  4. PYRIMETHAMINE TAB [Concomitant]
  5. TRIMETHOPRIM-SULFAMETHOXAZOLE DS             (BACTRIM /00086101/) [Concomitant]

REACTIONS (2)
  - POST PROCEDURAL COMPLICATION [None]
  - RETINAL DETACHMENT [None]
